FAERS Safety Report 4898759-2 (Version None)
Quarter: 2006Q1

REPORT INFORMATION
  Report Type: 
  Country: None (occurrence: None)
  Receive Date: 20060127
  Receipt Date: 20060118
  Transmission Date: 20060701
  Serious: No
  Sender: FDA-Public Use
  Company Number: HQWYE737601MAR05

PATIENT
  Age: 34 Year
  Sex: Male
  Weight: 103.6 kg

DRUGS (12)
  1. RAPAMUNE [Suspect]
     Indication: PROPHYLAXIS AGAINST TRANSPLANT REJECTION
     Dosage: SEE IMAGE
     Route: 048
     Dates: end: 20050727
  2. RAPAMUNE [Suspect]
     Indication: PROPHYLAXIS AGAINST TRANSPLANT REJECTION
     Dosage: SEE IMAGE
     Route: 048
     Dates: start: 20041218
  3. PROGRAF [Concomitant]
  4. PREDNISONE [Concomitant]
  5. RANITIDINE [Concomitant]
  6. TOPROL XL (METOPROL SUCCINATE) [Concomitant]
  7. NORVASC [Concomitant]
  8. BACTRIM DS [Concomitant]
  9. ACCUPRIL [Concomitant]
  10. SODIUM BICARBONATE IN PLASTIC CONTAINER [Concomitant]
  11. LIPITOR [Concomitant]
  12. HYDROCHLOROTHIAZIDE [Concomitant]

REACTIONS (6)
  - BLOOD GLUCOSE INCREASED [None]
  - BLOOD PRESSURE SYSTOLIC INCREASED [None]
  - IMMUNOSUPPRESSANT DRUG LEVEL DECREASED [None]
  - IMMUNOSUPPRESSANT DRUG LEVEL INCREASED [None]
  - INFLUENZA LIKE ILLNESS [None]
  - KIDNEY TRANSPLANT REJECTION [None]
